FAERS Safety Report 4333308-9 (Version None)
Quarter: 2004Q2

REPORT INFORMATION
  Report Type: 
  Country: None (occurrence: None)
  Receive Date: 20040401
  Receipt Date: 20040323
  Transmission Date: 20050107
  Serious: Yes (Other)
  Sender: FDA-Public Use
  Company Number: 2004-03-1919

PATIENT
  Sex: Male

DRUGS (2)
  1. REBETOL [Suspect]
     Dosage: ORAL
     Route: 048
     Dates: start: 20000101, end: 20021201
  2. INTRON A [Suspect]
     Dosage: TIW SUBCUTANEOUS
     Route: 058
     Dates: start: 20000101, end: 20021201

REACTIONS (3)
  - HYPOAESTHESIA [None]
  - NEUROPATHY PERIPHERAL [None]
  - VISUAL DISTURBANCE [None]
